FAERS Safety Report 14712974 (Version 1)
Quarter: 2018Q2

REPORT INFORMATION
  Report Type: Spontaneous
  Country: JP (occurrence: JP)
  Receive Date: 20180404
  Receipt Date: 20180404
  Transmission Date: 20180711
  Serious: Yes (Other)
  Sender: FDA-Public Use
  Company Number: JP-CIPLA LTD.-2018JP14031

PATIENT

DRUGS (4)
  1. CARBOPLATIN. [Suspect]
     Active Substance: CARBOPLATIN
     Indication: BRAIN NEOPLASM
  2. PACLITAXEL. [Suspect]
     Active Substance: PACLITAXEL
     Indication: BRAIN NEOPLASM
  3. CARBOPLATIN. [Suspect]
     Active Substance: CARBOPLATIN
     Indication: LUNG CARCINOMA CELL TYPE UNSPECIFIED RECURRENT
     Dosage: 4 CYCLES, AREA UNDER THE CURVE = 6; CYCLICAL
     Route: 065
  4. PACLITAXEL. [Suspect]
     Active Substance: PACLITAXEL
     Indication: LUNG CARCINOMA CELL TYPE UNSPECIFIED RECURRENT
     Dosage: 100 MG/M^2, 4 CYCLES, DOSE OF 100 MG/M2, EVERY 4 WEEKS; CYCLICAL
     Route: 065

REACTIONS (7)
  - Haematotoxicity [Unknown]
  - Thrombocytopenia [Unknown]
  - Hiccups [Unknown]
  - Constipation [Unknown]
  - Leukopenia [Unknown]
  - Toxicity to various agents [Unknown]
  - Neutropenia [Recovered/Resolved]
